FAERS Safety Report 6700763-6 (Version None)
Quarter: 2010Q2

REPORT INFORMATION
  Report Type: 
  Country: None (occurrence: None)
  Receive Date: 20100428
  Receipt Date: 20100326
  Transmission Date: 20101027
  Serious: Yes (Hospitalization)
  Sender: FDA-Public Use
  Company Number: US-ALEXION-A201000364

PATIENT
  Sex: Male

DRUGS (21)
  1. SOLIRIS [Suspect]
     Indication: HAEMOLYTIC URAEMIC SYNDROME
     Dosage: 600 MG, QW
     Route: 042
     Dates: start: 20090616, end: 20090630
  2. SOLIRIS [Suspect]
     Dosage: 600 MG, Q2W
     Route: 042
     Dates: start: 20090715, end: 20091222
  3. SOLIRIS [Suspect]
     Dosage: 600 MG, Q2W
     Route: 042
     Dates: start: 20100120
  4. AMLODIPINE [Concomitant]
     Indication: HYPERTENSION
     Dosage: 10 MG, BID
     Route: 048
     Dates: start: 20050101
  5. ERGOCALCIFEROL [Concomitant]
     Indication: HYPOPHOSPHATAEMIA
     Dosage: 2000 IU, QD
     Route: 048
     Dates: start: 20070101
  6. FUROSEMIDE [Concomitant]
     Indication: OEDEMA
     Dosage: 10 MG, QD (QAM)
     Dates: start: 20080101
  7. FUROSEMIDE [Concomitant]
     Indication: OEDEMA PERIPHERAL
     Dosage: 5 MG, QD (QHS)
     Route: 048
     Dates: start: 20080101
  8. LEVOTHYROXINE [Concomitant]
     Indication: HYPOTHYROIDISM
     Dosage: 75 UG, QD
     Route: 048
     Dates: start: 20090101, end: 20090101
  9. LEVOTHYROXINE [Concomitant]
     Dosage: 75
     Dates: start: 20091014
  10. LOSARTAN POTASSIUM [Concomitant]
     Indication: HYPERTENSION
     Dosage: 20 MG, QD
     Route: 048
     Dates: start: 20090101
  11. MULTI-VITAMINS [Concomitant]
     Indication: MEDICAL DIET
     Dosage: 2
     Dates: start: 20080101
  12. MINOXIDIL [Concomitant]
     Indication: HYPERTENSION
     Dosage: 10 MG, QD (QAM)
     Route: 048
     Dates: start: 20080101
  13. MINOXIDIL [Concomitant]
     Dosage: 5 MG, QD (QHS)
     Route: 048
     Dates: start: 20080101
  14. PREDNISOLONE W/SULFACETAMIDE SODIUM [Concomitant]
     Indication: OTITIS MEDIA
     Dosage: 3
     Dates: start: 20090609, end: 20091001
  15. PEN-VEE                            /00001801/ [Concomitant]
     Indication: PROPHYLAXIS
     Dosage: 5 ML, BID
     Route: 048
     Dates: start: 20090101
  16. ARANESP [Concomitant]
     Indication: ANAEMIA
     Dosage: 42 UG, EVERY OTHER WEEK
     Dates: start: 20090808
  17. FERRLECIT                          /00345601/ [Concomitant]
     Indication: IRON DEFICIENCY
     Dosage: 15 MG, QD
     Dates: start: 20090808
  18. CLINDAMYCIN [Concomitant]
     Indication: SINUSITIS
     Dosage: 10 ML, TID
     Route: 048
     Dates: start: 20091014, end: 20091020
  19. SINGULAIR [Concomitant]
     Indication: SEASONAL ALLERGY
     Dosage: 4
     Dates: start: 20090101
  20. FLONASE [Concomitant]
     Indication: SINUS CONGESTION
     Dosage: 2
     Dates: start: 20090101
  21. CEFPODOXIME PROXETIL [Concomitant]
     Indication: OTITIS MEDIA
     Dosage: 5
     Dates: start: 20090101

REACTIONS (1)
  - DEVICE RELATED INFECTION [None]
